FAERS Safety Report 5216624-8 (Version None)
Quarter: 2007Q1

REPORT INFORMATION
  Report Type: 
  Country: None (occurrence: None)
  Receive Date: 20061130
  Receipt Date: 20060501
  Transmission Date: 20070707
  Serious: Yes (Hospitalization)
  Sender: FDA-Public Use
  Company Number: US200604004388

PATIENT
  Sex: Female
  Weight: 67.1 kg

DRUGS (2)
  1. ZYPREXA [Suspect]
     Dosage: 2.5 MG, ORAL
     Route: 048
     Dates: start: 20021201, end: 20030101
  2. PAXIL [Concomitant]

REACTIONS (9)
  - BILIARY TRACT DISORDER [None]
  - BLOOD TRIGLYCERIDES INCREASED [None]
  - DIABETES MELLITUS [None]
  - GLUCOSE TOLERANCE IMPAIRED [None]
  - HYPERGLYCAEMIA [None]
  - HYPERINSULINISM [None]
  - HYPERTENSION [None]
  - HYPOGLYCAEMIA [None]
  - PANCREATITIS ACUTE [None]
